FAERS Safety Report 8571007-8 (Version None)
Quarter: 2012Q3

REPORT INFORMATION
  Report Type: 
  Country: None (occurrence: None)
  Receive Date: 20120806
  Receipt Date: 20120726
  Transmission Date: 20120928
  Serious: No
  Sender: FDA-Public Use
  Company Number: US-009507513-1207USA011751

PATIENT

DRUGS (6)
  1. CLARINEX [Suspect]
  2. VICTRELIS [Suspect]
     Indication: HEPATITIS C
     Dosage: 800 MG, TID
     Route: 048
     Dates: start: 20120501
  3. RIBASPHERE [Suspect]
  4. PEGASYS [Suspect]
  5. PRILOSEC [Suspect]
  6. DIOVAN [Concomitant]

REACTIONS (5)
  - RED BLOOD CELL COUNT DECREASED [None]
  - DYSPNOEA [None]
  - FATIGUE [None]
  - NO THERAPEUTIC RESPONSE [None]
  - ANAEMIA [None]
